FAERS Safety Report 7215822-1 (Version None)
Quarter: 2011Q1

REPORT INFORMATION
  Report Type: 
  Country: None (occurrence: None)
  Receive Date: 20110107
  Receipt Date: 20101229
  Transmission Date: 20110831
  Serious: Yes (Other)
  Sender: FDA-Public Use
  Company Number: US-MYLANLABS-2010S1023733

PATIENT
  Age: 51 Year
  Sex: Female

DRUGS (6)
  1. SIMVASTATIN [Concomitant]
  2. PROVIGIL [Concomitant]
  3. FENTANYL-100 [Suspect]
     Indication: MULTIPLE SCLEROSIS
     Dosage: CHANGED Q48 HRS
     Route: 062
     Dates: start: 20070101
  4. LYRICA [Concomitant]
  5. CYMBALTA [Concomitant]
  6. NORVASC [Concomitant]

REACTIONS (3)
  - ASTHENIA [None]
  - HOT FLUSH [None]
  - COLD SWEAT [None]
